FAERS Safety Report 8122057-7 (Version None)
Quarter: 2012Q1

REPORT INFORMATION
  Report Type: 
  Country: None (occurrence: None)
  Receive Date: 20120208
  Receipt Date: 20120206
  Transmission Date: 20120608
  Serious: Yes (Hospitalization)
  Sender: FDA-Public Use
  Company Number: AU-ROCHE-1037864

PATIENT
  Sex: Female
  Weight: 65 kg

DRUGS (4)
  1. OXALIPLATIN [Concomitant]
     Indication: PANCREATIC CARCINOMA
     Route: 042
  2. XELODA [Suspect]
     Indication: PANCREATIC CARCINOMA METASTATIC
     Route: 048
     Dates: start: 20120121, end: 20120124
  3. ASPIRIN [Concomitant]
     Indication: MYOCARDIAL ISCHAEMIA
     Route: 048
  4. ATENOLOL [Concomitant]
     Indication: HYPERTENSION
     Route: 048

REACTIONS (1)
  - INTESTINAL OBSTRUCTION [None]
